FAERS Safety Report 17454772 (Version 4)
Quarter: 2020Q2

REPORT INFORMATION
  Report Type: Report from Study
  Country: US (occurrence: US)
  Receive Date: 20200225
  Receipt Date: 20200422
  Transmission Date: 20200713
  Serious: No
  Sender: FDA-Public Use
  Company Number: NVSC2020US048346

PATIENT
  Sex: Female

DRUGS (1)
  1. BEOVU [Suspect]
     Active Substance: BROLUCIZUMAB-DBLL
     Indication: NEOVASCULAR AGE-RELATED MACULAR DEGENERATION
     Route: 047
     Dates: start: 20200211

REACTIONS (5)
  - Arthralgia [Unknown]
  - Asthma [Unknown]
  - Mydriasis [Unknown]
  - Vitreous floaters [Recovered/Resolved]
  - Fatigue [Unknown]
